FAERS Safety Report 25374558 (Version 1)
Quarter: 2025Q2

REPORT INFORMATION
  Report Type: Spontaneous
  Country: DE (occurrence: DE)
  Receive Date: 20250529
  Receipt Date: 20250529
  Transmission Date: 20250717
  Serious: Yes (Hospitalization)
  Sender: LUNDBECK
  Company Number: DE-Desitin-2024-02685

PATIENT
  Sex: Female

DRUGS (31)
  1. CLOBAZAM [Suspect]
     Active Substance: CLOBAZAM
     Indication: Seizure
     Dosage: 20 MG, QD
     Dates: start: 2014
  2. VIGABATRIN [Suspect]
     Active Substance: VIGABATRIN
     Indication: Seizure
     Dosage: 900 MG, QD
     Dates: start: 1998
  3. PREGABALIN [Suspect]
     Active Substance: PREGABALIN
     Indication: Seizure
  4. ZONISAMIDE [Suspect]
     Active Substance: ZONISAMIDE
     Indication: Seizure
  5. LEVETIRACETAM [Suspect]
     Active Substance: LEVETIRACETAM
     Indication: Seizure
     Dosage: 3000 MG, QD
     Dates: start: 2010, end: 2020
  6. PHENOBARBITAL [Suspect]
     Active Substance: PHENOBARBITAL
     Indication: Status epilepticus
     Dates: start: 2022
  7. VALPROIC ACID [Suspect]
     Active Substance: VALPROIC ACID
     Indication: Seizure
     Dosage: 1500 MG, QD
     Dates: start: 2010
  8. VALPROIC ACID [Suspect]
     Active Substance: VALPROIC ACID
     Dosage: 1.2 G, QD
     Dates: start: 2022
  9. TOPIRAMATE [Suspect]
     Active Substance: TOPIRAMATE
     Indication: Seizure
     Dosage: 900 MG, QD
     Dates: start: 2000
  10. TOPIRAMATE [Suspect]
     Active Substance: TOPIRAMATE
     Indication: Status epilepticus
     Dosage: 400 MG, QD
     Dates: start: 2022
  11. MIDAZOLAM [Suspect]
     Active Substance: MIDAZOLAM
     Indication: Seizure
     Dates: start: 2022
  12. PHENYTOIN [Suspect]
     Active Substance: PHENYTOIN
     Indication: Seizure
     Dosage: 1500 MG, QD
     Dates: start: 2008, end: 2020
  13. PHENYTOIN [Suspect]
     Active Substance: PHENYTOIN
     Indication: Status epilepticus
     Dates: start: 2022, end: 2022
  14. PHENYTOIN [Suspect]
     Active Substance: PHENYTOIN
     Dates: start: 2022, end: 2022
  15. LACOSAMIDE [Suspect]
     Active Substance: LACOSAMIDE
     Indication: Seizure
     Dosage: 500 MG, QD
     Dates: start: 2010
  16. LACOSAMIDE [Suspect]
     Active Substance: LACOSAMIDE
     Dosage: 500 MG, QD
     Dates: start: 2016
  17. LACOSAMIDE [Suspect]
     Active Substance: LACOSAMIDE
     Dosage: 500 MG, QD
     Dates: start: 2020
  18. PROPOFOL [Suspect]
     Active Substance: PROPOFOL
     Indication: Seizure
     Dates: start: 20221103, end: 20221109
  19. SULTHIAME [Suspect]
     Active Substance: SULTHIAME
     Indication: Seizure
     Dates: start: 2000
  20. DIAZEPAM [Suspect]
     Active Substance: DIAZEPAM
     Indication: Status epilepticus
     Dates: start: 2022
  21. METHSUXIMIDE [Suspect]
     Active Substance: METHSUXIMIDE
     Indication: Seizure
     Dosage: 375 MG, QD,RECEIVED BEFORE 2003
  22. PRIMIDONE [Suspect]
     Active Substance: PRIMIDONE
     Indication: Seizure
  23. RUFINAMIDE [Suspect]
     Active Substance: RUFINAMIDE
     Indication: Seizure
     Dosage: 3200 MG
     Dates: start: 2015
  24. CANNABIDIOL [Suspect]
     Active Substance: CANNABIDIOL
     Indication: Seizure
     Dosage: 1580 MG, QD
     Dates: start: 2020
  25. EVEROLIMUS [Suspect]
     Active Substance: EVEROLIMUS
     Indication: Status epilepticus
     Dosage: 2.5 MG, QD
     Dates: start: 2020
  26. EVEROLIMUS [Suspect]
     Active Substance: EVEROLIMUS
     Indication: Seizure
     Dosage: 2.5 MG, QD
  27. BRIVARACETAM [Suspect]
     Active Substance: BRIVARACETAM
     Indication: Seizure
     Dosage: 200 MG, QD
     Dates: start: 2020, end: 2022
  28. PERAMPANEL [Suspect]
     Active Substance: PERAMPANEL
     Indication: Seizure
     Dosage: 12 MG, QD
     Dates: start: 2022
  29. ESKETAMINE [Suspect]
     Active Substance: ESKETAMINE
     Indication: Status epilepticus
     Dates: start: 2022
  30. ISOFLURANE [Suspect]
     Active Substance: ISOFLURANE
     Indication: Status epilepticus
     Dates: start: 2022
  31. FENFLURAMINE [Suspect]
     Active Substance: FENFLURAMINE
     Indication: Status epilepticus
     Dosage: 42 MG, QD,NASOGASTRIC TUBE

REACTIONS (1)
  - Drug ineffective [Unknown]
